FAERS Safety Report 8484414-9 (Version None)
Quarter: 2012Q3

REPORT INFORMATION
  Report Type: 
  Country: None (occurrence: None)
  Receive Date: 20120703
  Receipt Date: 20120629
  Transmission Date: 20120928
  Serious: Yes (Other)
  Sender: FDA-Public Use
  Company Number: PHHY2012FR012057

PATIENT
  Sex: Female
  Weight: 47 kg

DRUGS (7)
  1. BONIVA [Suspect]
     Indication: OSTEOPOROSIS
     Dosage: UNK UKN, UNK
     Dates: start: 20070518, end: 20080915
  2. VITAMIN D [Concomitant]
     Dosage: UNK UKN, UNK
  3. VALSARTAN [Concomitant]
     Dosage: UNK UKN, UNK
  4. ZOLEDRONOC ACID [Suspect]
     Indication: OSTEOPOROSIS
     Dosage: 5 MG, YEARLY
     Route: 042
     Dates: start: 20081120, end: 20110331
  5. CORTICOSTEROID NOS [Concomitant]
     Dosage: 40 MG, ONCE/SINGLE
     Dates: start: 20110201
  6. CALCIUM [Concomitant]
     Dosage: UNK UKN, UNK
  7. FOSAMAX [Suspect]
     Indication: OSTEOPOROSIS
     Dosage: UNK UKN, UNK
     Dates: start: 20040819, end: 20061010

REACTIONS (7)
  - GINGIVITIS [None]
  - OSTEONECROSIS OF JAW [None]
  - GRANULOMA [None]
  - GINGIVAL DISORDER [None]
  - IMPAIRED HEALING [None]
  - PRIMARY SEQUESTRUM [None]
  - PAIN [None]
